FAERS Safety Report 6390615-6 (Version None)
Quarter: 2009Q4

REPORT INFORMATION
  Report Type: 
  Country: None (occurrence: None)
  Receive Date: 20091006
  Receipt Date: 20090928
  Transmission Date: 20100525
  Serious: Yes (Death)
  Sender: FDA-Public Use
  Company Number: US-AVENTIS-200918666US

PATIENT
  Sex: Female
  Weight: 123.62 kg

DRUGS (4)
  1. LOVENOX [Suspect]
     Dosage: DOSE: UNK
  2. AGGRENOX [Suspect]
     Dosage: DOSE: UNK
  3. CHOLESTEROL- AND TRIGLYCERIDE REDUCERS [Concomitant]
     Dosage: DOSE: UNK
  4. ZOLOFT [Concomitant]
     Dosage: DOSE: UNK

REACTIONS (4)
  - APNOEA [None]
  - DRUG INEFFECTIVE [None]
  - LOSS OF CONSCIOUSNESS [None]
  - PULMONARY EMBOLISM [None]
